FAERS Safety Report 16079432 (Version 1)
Quarter: 2019Q1

REPORT INFORMATION
  Report Type: Spontaneous
  Country: GB (occurrence: GB)
  Receive Date: 20190315
  Receipt Date: 20190315
  Transmission Date: 20190418
  Serious: Yes (Other)
  Sender: FDA-Public Use
  Company Number: GB-TEVA-2019-GB-1023567

PATIENT
  Age: 74 Year
  Sex: Female
  Weight: 78.46 kg

DRUGS (10)
  1. SELENIUM [Concomitant]
     Active Substance: SELENIUM
  2. EVENING PRIMROSE OIL [Concomitant]
     Active Substance: EVENING PRIMROSE OIL\HERBALS
  3. OMEPRAZOLE. [Concomitant]
     Active Substance: OMEPRAZOLE
     Indication: HIATUS HERNIA
     Dosage: 20 MILLIGRAM DAILY; (PREVIOUSLY 10MG DAILY)
  4. ASCORBIC ACID. [Concomitant]
     Active Substance: ASCORBIC ACID
  5. ALPHA-TOCOPHEROL [Concomitant]
     Active Substance: .ALPHA.-TOCOPHEROL
  6. DOXYCYCLINE HYCLATE. [Suspect]
     Active Substance: DOXYCYCLINE HYCLATE
     Indication: SINUSITIS
     Dosage: 200MG IMMEDIATELY THEN 100MG PER DAY FOR NEXT 6 DAYS.
     Route: 048
     Dates: start: 20190207, end: 20190209
  7. RETINOL [Concomitant]
     Active Substance: RETINOL
  8. VITAMIN B12 [Concomitant]
     Active Substance: CYANOCOBALAMIN
  9. LEVOTHYROXINE. [Concomitant]
     Active Substance: LEVOTHYROXINE
  10. COLECALCIFEROL [Concomitant]
     Active Substance: CHOLECALCIFEROL
     Dosage: SMALL DOSE

REACTIONS (3)
  - Dyspepsia [Not Recovered/Not Resolved]
  - Condition aggravated [Not Recovered/Not Resolved]
  - Oesophageal discomfort [Not Recovered/Not Resolved]

NARRATIVE: CASE EVENT DATE: 20190209
